FAERS Safety Report 12385422 (Version 3)
Quarter: 2016Q2

REPORT INFORMATION
  Report Type: Spontaneous
  Country: US (occurrence: US)
  Receive Date: 20160519
  Receipt Date: 20160627
  Transmission Date: 20160815
  Serious: Yes (Hospitalization, Other)
  Sender: FDA-Public Use
  Company Number: US-GLAXOSMITHKLINE-A0977063A

PATIENT
  Age: 80 Year
  Sex: Female

DRUGS (8)
  1. ADVAIR HFA [Suspect]
     Active Substance: FLUTICASONE PROPIONATE\SALMETEROL XINAFOATE
     Indication: CHRONIC OBSTRUCTIVE PULMONARY DISEASE
     Dosage: 250/50 MCG, UNK, BID
     Route: 055
     Dates: start: 2006
  2. LYRICA [Suspect]
     Active Substance: PREGABALIN
     Indication: PAIN
     Dosage: UNK
     Dates: start: 201603
  3. TRIAMTERENE AND HYDROCHLOROTHIAZIDE [Concomitant]
     Active Substance: HYDROCHLOROTHIAZIDE\TRIAMTERENE
  4. OMEPRAZOLE. [Concomitant]
     Active Substance: OMEPRAZOLE
  5. METOPROLOL. [Concomitant]
     Active Substance: METOPROLOL
  6. ALBUTEROL. [Concomitant]
     Active Substance: ALBUTEROL
  7. LYRICA [Suspect]
     Active Substance: PREGABALIN
     Indication: POST HERPETIC NEURALGIA
  8. SPIRIVA [Suspect]
     Active Substance: TIOTROPIUM BROMIDE MONOHYDRATE
     Indication: CHRONIC OBSTRUCTIVE PULMONARY DISEASE
     Dosage: UNK, QD
     Dates: start: 2011

REACTIONS (11)
  - Dysphonia [Unknown]
  - Pain in extremity [Recovering/Resolving]
  - Peripheral swelling [Unknown]
  - Herpes zoster [Recovered/Resolved]
  - Withdrawal syndrome [Unknown]
  - Weight decreased [Recovered/Resolved]
  - Post herpetic neuralgia [Unknown]
  - Hospitalisation [Recovered/Resolved]
  - Pain [Not Recovered/Not Resolved]
  - Treatment noncompliance [Unknown]
  - Nerve injury [Not Recovered/Not Resolved]

NARRATIVE: CASE EVENT DATE: 201510
